FAERS Safety Report 11423302 (Version 1)
Quarter: 2015Q3

REPORT INFORMATION
  Report Type: Spontaneous
  Country: US (occurrence: None)
  Receive Date: 20150826
  Receipt Date: 20150826
  Transmission Date: 20151125
  Serious: Yes (Life-Threatening, Hospitalization, Disabling, Other)
  Sender: FDA-Public Use
  Company Number: None

PATIENT
  Age: 58 Year
  Sex: Male
  Weight: 70.31 kg

DRUGS (5)
  1. KLONOPIN [Concomitant]
     Active Substance: CLONAZEPAM
  2. MILK THISTLE [Concomitant]
     Active Substance: MILK THISTLE
  3. METHADONE [Concomitant]
     Active Substance: METHADONE HYDROCHLORIDE
  4. XARELTO [Suspect]
     Active Substance: RIVAROXABAN
     Indication: PRODUCT USED FOR UNKNOWN INDICATION
     Route: 048
     Dates: start: 20120523
  5. MULTI B COMPLEX [Concomitant]

REACTIONS (5)
  - Cardio-respiratory arrest [None]
  - Renal failure [None]
  - Blood magnesium decreased [None]
  - Haemorrhage [None]
  - Myocardial infarction [None]

NARRATIVE: CASE EVENT DATE: 20120523
